FAERS Safety Report 17743158 (Version 1)
Quarter: 2020Q2

REPORT INFORMATION
  Report Type: Spontaneous
  Country: US (occurrence: US)
  Receive Date: 20200505
  Receipt Date: 20200505
  Transmission Date: 20200714
  Serious: No
  Sender: FDA-Public Use
  Company Number: US-ROCHE-2394958

PATIENT
  Age: 62 Year
  Sex: Male

DRUGS (1)
  1. ESBRIET [Suspect]
     Active Substance: PIRFENIDONE
     Indication: IDIOPATHIC PULMONARY FIBROSIS
     Route: 048
     Dates: start: 20181228

REACTIONS (4)
  - Rash [Not Recovered/Not Resolved]
  - Cough [Unknown]
  - Photosensitivity reaction [Unknown]
  - Secretion discharge [Unknown]

NARRATIVE: CASE EVENT DATE: 20181228
